FAERS Safety Report 8705185 (Version 2)
Quarter: 2013Q4

REPORT INFORMATION
  Report Type: Spontaneous
  Country: US (occurrence: US)
  Receive Date: 20120803
  Receipt Date: 20131031
  Transmission Date: 20140711
  Serious: Yes (Other)
  Sender: FDA-Public Use
  Company Number: US-009507513-1207USA012057

PATIENT
  Sex: Female

DRUGS (16)
  1. ELOCON [Suspect]
     Route: 061
  2. LYRICA [Suspect]
     Dosage: 150 MG, BID
     Route: 048
  3. LYRICA [Suspect]
     Dosage: 50 MG, QD
     Route: 048
  4. LYRICA [Suspect]
     Dosage: 300 MG, UNK
  5. LYRICA [Suspect]
     Dosage: UNK
     Route: 048
  6. DESOXIMETASONE [Suspect]
     Route: 061
  7. PREDNISONE [Suspect]
     Dosage: UNK
  8. CYMBALTA [Suspect]
     Dosage: 60 MG, BID
  9. HYDROCODONE [Concomitant]
     Dosage: 325 MG, PRN
  10. PRILOSEC [Concomitant]
     Dosage: 40 MG, BID
  11. SIMVASTATIN [Concomitant]
     Dosage: 20 MG, QD
  12. ATENOLOL [Concomitant]
     Dosage: 50 MG, BID
  13. LOTREL [Concomitant]
     Dosage: 5/40, MG, QD
  14. TRAZODONE HYDROCHLORIDE [Concomitant]
     Dosage: 50 MG, QD
  15. KLONOPIN [Concomitant]
     Dosage: 2 MG, QD
  16. HYDROCODONE [Suspect]

REACTIONS (7)
  - Drug ineffective [Unknown]
  - Blister [Unknown]
  - Irritability [Unknown]
  - Pruritus [Unknown]
  - Depression [Unknown]
  - Hyperhidrosis [Unknown]
  - Mood altered [Unknown]
